FAERS Safety Report 9064892 (Version 7)
Quarter: 2017Q4

REPORT INFORMATION
  Report Type: Spontaneous
  Country: CA (occurrence: CA)
  Receive Date: 20130206
  Receipt Date: 20171113
  Transmission Date: 20180321
  Serious: Yes (Hospitalization, Other)
  Sender: FDA-Public Use
  Company Number: CA-ROCHE-1187659

PATIENT
  Age: 62 Year
  Sex: Male

DRUGS (2)
  1. XOLAIR [Suspect]
     Active Substance: OMALIZUMAB
     Route: 058
     Dates: start: 20090420
  2. XOLAIR [Suspect]
     Active Substance: OMALIZUMAB
     Indication: ASTHMA
     Route: 058
     Dates: start: 20061016

REACTIONS (7)
  - Localised infection [Unknown]
  - Hypoaesthesia [Unknown]
  - Angiopathy [Unknown]
  - Weight decreased [Unknown]
  - Limb discomfort [Unknown]
  - Cardiovascular disorder [Unknown]
  - Skin ulcer [Unknown]

NARRATIVE: CASE EVENT DATE: 201112
